FAERS Safety Report 9493184 (Version 1)
Quarter: 2013Q3

REPORT INFORMATION
  Report Type: Spontaneous
  Country: US (occurrence: US)
  Receive Date: 20130902
  Receipt Date: 20130902
  Transmission Date: 20140515
  Serious: Yes (Life-Threatening, Hospitalization)
  Sender: FDA-Public Use
  Company Number: US-BRISTOL-MYERS SQUIBB COMPANY-19209469

PATIENT
  Age: 22 Year
  Sex: Male
  Weight: 83.9 kg

DRUGS (1)
  1. ABILIFY TABS 5 MG [Suspect]
     Indication: NERVOUSNESS
     Dosage: 5 MG TABS SPILLTED INTO TO AND 2.5MG WAS TAKEN.CP

REACTIONS (4)
  - Blood glucose increased [Recovered/Resolved]
  - Abnormal behaviour [Recovered/Resolved]
  - Thirst [Recovered/Resolved]
  - Wrong technique in drug usage process [Unknown]
